FAERS Safety Report 16918861 (Version 1)
Quarter: 2019Q4

REPORT INFORMATION
  Report Type: Spontaneous
  Country: US (occurrence: US)
  Receive Date: 20191014
  Receipt Date: 20191014
  Transmission Date: 20200122
  Serious: No
  Sender: FDA-Public Use
  Company Number: None

PATIENT

DRUGS (2)
  1. CHLORHEXIDINE GLUCONATE ORAL RINSE, USP [Suspect]
     Active Substance: CHLORHEXIDINE GLUCONATE
  2. POTASSIUM CHLORIDE ORAL SOLUTION, USP [Suspect]
     Active Substance: POTASSIUM CHLORIDE

REACTIONS (1)
  - Product packaging confusion [None]

NARRATIVE: CASE EVENT DATE: 20190531
